FAERS Safety Report 11769910 (Version 1)
Quarter: 2015Q4

REPORT INFORMATION
  Report Type: Report from Study
  Country: JP (occurrence: JP)
  Receive Date: 20151123
  Receipt Date: 20151123
  Transmission Date: 20160304
  Serious: Yes (Hospitalization, Other)
  Sender: FDA-Public Use
  Company Number: JP-GILEAD-2015-0183400

PATIENT
  Age: 54 Year
  Sex: Female

DRUGS (7)
  1. ADCIRCA [Concomitant]
     Active Substance: TADALAFIL
     Indication: PULMONARY HYPERTENSION
     Dosage: UNK
     Dates: end: 20150707
  2. WARFARIN [Concomitant]
     Active Substance: WARFARIN
     Dosage: UNK
  3. NEXIUM [Concomitant]
     Active Substance: ESOMEPRAZOLE MAGNESIUM
     Dosage: UNK
  4. AMBRISENTAN [Suspect]
     Active Substance: AMBRISENTAN
     Indication: PULMONARY HYPERTENSION
     Dosage: 5 MG, QD
     Route: 048
     Dates: start: 20130722
  5. ADALAT [Concomitant]
     Active Substance: NIFEDIPINE
     Dosage: UNK
     Dates: end: 20130828
  6. LIVALO [Concomitant]
     Active Substance: PITAVASTATIN CALCIUM
     Dosage: UNK
  7. ADEMPAS [Concomitant]
     Active Substance: RIOCIGUAT
     Indication: PULMONARY HYPERTENSION
     Dosage: UNK
     Dates: start: 20150708

REACTIONS (2)
  - Off label use [Unknown]
  - Pneumonia [Recovered/Resolved]

NARRATIVE: CASE EVENT DATE: 20141019
